FAERS Safety Report 22246293 (Version 16)
Quarter: 2024Q3

REPORT INFORMATION
  Report Type: Spontaneous
  Country: US (occurrence: US)
  Receive Date: 20230424
  Receipt Date: 20240819
  Transmission Date: 20241016
  Serious: Yes (Other)
  Sender: SANOFI AVENTIS
  Company Number: US-SA-SAC20230424000149

PATIENT
  Age: 30 Year
  Sex: Male

DRUGS (34)
  1. ELOCTATE [Suspect]
     Active Substance: EFMOROCTOCOG ALFA
     Indication: Factor VIII deficiency
     Dosage: 750 IU, QD
     Route: 042
     Dates: start: 201801
  2. ELOCTATE [Suspect]
     Active Substance: EFMOROCTOCOG ALFA
     Indication: Factor VIII deficiency
     Dosage: 750 IU, QD
     Route: 042
     Dates: start: 201801
  3. ELOCTATE [Suspect]
     Active Substance: EFMOROCTOCOG ALFA
     Dosage: 3000 IU (2700-3300), Q4D FOR MILD/ MODERATE BLEEDS
     Route: 042
     Dates: start: 201801
  4. ELOCTATE [Suspect]
     Active Substance: EFMOROCTOCOG ALFA
     Dosage: 3000 IU (2700-3300), Q4D FOR MILD/ MODERATE BLEEDS
     Route: 042
     Dates: start: 201801
  5. ELOCTATE [Suspect]
     Active Substance: EFMOROCTOCOG ALFA
     Dosage: 3000 IU (2700-3300), REPEAT EVERY 24 HOURS FOR MILD/ MODERATE BLEEDS AND REPEAT EVERY 24 HOURS
     Route: 042
     Dates: start: 201801
  6. ELOCTATE [Suspect]
     Active Substance: EFMOROCTOCOG ALFA
     Dosage: 3000 IU (2700-3300), REPEAT EVERY 24 HOURS FOR MILD/ MODERATE BLEEDS AND REPEAT EVERY 24 HOURS
     Route: 042
     Dates: start: 201801
  7. ELOCTATE [Suspect]
     Active Substance: EFMOROCTOCOG ALFA
     Dosage: 5,000 U (4500-5500), PRN (SLOW IV FOR SEVERE BLEEDING , SEEK MEDICAL ATTENTION)
     Route: 042
     Dates: start: 201801
  8. ELOCTATE [Suspect]
     Active Substance: EFMOROCTOCOG ALFA
     Dosage: 5,000 U (4500-5500), PRN (SLOW IV FOR SEVERE BLEEDING , SEEK MEDICAL ATTENTION)
     Route: 042
     Dates: start: 201801
  9. ELOCTATE [Suspect]
     Active Substance: EFMOROCTOCOG ALFA
     Dosage: 5,000 U (4500-5500) SLOW IV EVERY 4 DAYS FOR PROPHYLAXIS
     Route: 041
     Dates: start: 201801
  10. ELOCTATE [Suspect]
     Active Substance: EFMOROCTOCOG ALFA
     Dosage: 5,000 U (4500-5500) SLOW IV EVERY 4 DAYS FOR PROPHYLAXIS
     Route: 041
     Dates: start: 201801
  11. ELOCTATE [Suspect]
     Active Substance: EFMOROCTOCOG ALFA
     Dosage: 2000 U, Q4D
     Route: 042
     Dates: start: 201801
  12. ELOCTATE [Suspect]
     Active Substance: EFMOROCTOCOG ALFA
     Dosage: 2000 U, Q4D
     Route: 042
     Dates: start: 201801
  13. ELOCTATE [Suspect]
     Active Substance: EFMOROCTOCOG ALFA
     Dosage: 2000 U, PRN
     Route: 042
     Dates: start: 201801
  14. ELOCTATE [Suspect]
     Active Substance: EFMOROCTOCOG ALFA
     Dosage: 2000 U, PRN
     Route: 042
     Dates: start: 201801
  15. ELOCTATE [Suspect]
     Active Substance: EFMOROCTOCOG ALFA
     Dosage: 5400 IU (4400 UNITS + 1000 UNITS), Q4D FOR PROPHYLAXIS
     Route: 042
     Dates: start: 2018
  16. ELOCTATE [Suspect]
     Active Substance: EFMOROCTOCOG ALFA
     Dosage: 5400 IU (4400 UNITS + 1000 UNITS), Q4D FOR PROPHYLAXIS
     Route: 042
     Dates: start: 2018
  17. ELOCTATE [Suspect]
     Active Substance: EFMOROCTOCOG ALFA
     Dosage: 5400 IU (4400 UNITS + 1000 UNITS), PRN FOR PROPHYLAXIS
     Route: 042
     Dates: start: 2018
  18. ELOCTATE [Suspect]
     Active Substance: EFMOROCTOCOG ALFA
     Dosage: 5400 IU (4400 UNITS + 1000 UNITS), PRN FOR PROPHYLAXIS
     Route: 042
     Dates: start: 2018
  19. ELOCTATE [Suspect]
     Active Substance: EFMOROCTOCOG ALFA
     Dosage: 5000 U, Q4D
     Route: 042
     Dates: start: 202212
  20. ELOCTATE [Suspect]
     Active Substance: EFMOROCTOCOG ALFA
     Dosage: 5000 U, Q4D
     Route: 042
     Dates: start: 202212
  21. ELOCTATE [Suspect]
     Active Substance: EFMOROCTOCOG ALFA
     Dosage: 5000 U, PRN
     Route: 042
     Dates: start: 202212
  22. ELOCTATE [Suspect]
     Active Substance: EFMOROCTOCOG ALFA
     Dosage: 5000 U, PRN
     Route: 042
     Dates: start: 202212
  23. ELOCTATE [Suspect]
     Active Substance: EFMOROCTOCOG ALFA
     Dosage: 2000 IU, QD
     Route: 042
  24. ELOCTATE [Suspect]
     Active Substance: EFMOROCTOCOG ALFA
     Dosage: 2000 IU, QD
     Route: 042
  25. ELOCTATE [Suspect]
     Active Substance: EFMOROCTOCOG ALFA
     Dosage: 4500 IU EVERY 4 DAYS AND PRN
     Route: 042
  26. ELOCTATE [Suspect]
     Active Substance: EFMOROCTOCOG ALFA
     Dosage: 4500 IU EVERY 4 DAYS AND PRN
     Route: 042
  27. ELOCTATE [Suspect]
     Active Substance: EFMOROCTOCOG ALFA
     Dosage: 4500 IU EVERY 4 DAYS AND PRN
     Route: 042
  28. ELOCTATE [Suspect]
     Active Substance: EFMOROCTOCOG ALFA
     Dosage: 4500 IU EVERY 4 DAYS AND PRN
     Route: 042
  29. ELOCTATE [Suspect]
     Active Substance: EFMOROCTOCOG ALFA
     Dosage: 2925 U (2633-3217), REPEAT IN 24 HOURS FOR MILD/MODERATE BLEEDS
     Route: 042
  30. ELOCTATE [Suspect]
     Active Substance: EFMOROCTOCOG ALFA
     Dosage: 2925 U (2633-3217), REPEAT IN 24 HOURS FOR MILD/MODERATE BLEEDS
     Route: 042
  31. ELOCTATE [Suspect]
     Active Substance: EFMOROCTOCOG ALFA
     Dosage: 4875 U (4388-5362), REPEAT IN 24 HOURS FOR MAJOR BLEEDS
     Route: 042
  32. ELOCTATE [Suspect]
     Active Substance: EFMOROCTOCOG ALFA
     Dosage: 4875 U (4388-5362), REPEAT IN 24 HOURS FOR MAJOR BLEEDS
     Route: 042
  33. ELOCTATE [Suspect]
     Active Substance: EFMOROCTOCOG ALFA
     Dosage: 4875 U (4388-5362), Q4D
     Route: 042
  34. ELOCTATE [Suspect]
     Active Substance: EFMOROCTOCOG ALFA
     Dosage: 4875 U (4388-5362), Q4D
     Route: 042

REACTIONS (15)
  - Haemorrhage [Recovered/Resolved]
  - Spontaneous haemorrhage [Unknown]
  - Haemorrhage [Unknown]
  - Haemorrhage [Recovered/Resolved]
  - Spontaneous haemorrhage [Unknown]
  - Traumatic haemorrhage [Recovered/Resolved]
  - Limb injury [Unknown]
  - Haemorrhage [Recovered/Resolved]
  - Haemorrhage [Recovered/Resolved]
  - Haemorrhage [Recovered/Resolved]
  - Haemorrhage [Unknown]
  - Haemorrhage [Recovered/Resolved]
  - Haemorrhage [Not Recovered/Not Resolved]
  - General physical health deterioration [Unknown]
  - Haemorrhage [Unknown]

NARRATIVE: CASE EVENT DATE: 20230730
